FAERS Safety Report 9686867 (Version 2)
Quarter: 2013Q4

REPORT INFORMATION
  Report Type: Spontaneous
  Country: US (occurrence: US)
  Receive Date: 20131113
  Receipt Date: 20131202
  Transmission Date: 20140711
  Serious: Yes (Other)
  Sender: FDA-Public Use
  Company Number: US-PFIZER INC-2013324106

PATIENT
  Age: 57 Year
  Sex: Female
  Weight: 59.86 kg

DRUGS (2)
  1. LYRICA [Suspect]
     Indication: DIABETIC NEUROPATHY
     Dosage: 100 MG, 3X/DAY
     Route: 048
     Dates: start: 2003
  2. OXYCODONE [Concomitant]
     Dosage: 160 MG, 2X/DAY

REACTIONS (2)
  - Musculoskeletal disorder [Unknown]
  - Joint injury [Unknown]
